FAERS Safety Report 6895548-4 (Version None)
Quarter: 2010Q3

REPORT INFORMATION
  Report Type: 
  Country: None (occurrence: None)
  Receive Date: 20100802
  Receipt Date: 20100727
  Transmission Date: 20110219
  Serious: Yes (Death, Other)
  Sender: FDA-Public Use
  Company Number: PHHY2010US39900

PATIENT
  Sex: Female
  Weight: 73 kg

DRUGS (7)
  1. EXJADE [Suspect]
     Indication: IRON OVERLOAD
     Dosage: 2500 MG, DAILY
     Route: 048
     Dates: start: 20051101
  2. DILAUDID [Concomitant]
     Indication: BACK PAIN
     Dosage: 100 MG, TID
     Route: 048
     Dates: start: 20060301
  3. DILAUDID [Concomitant]
     Dosage: UNK
  4. METHADONE HCL [Concomitant]
     Indication: BACK PAIN
     Dosage: 10 MG, TID
     Route: 048
  5. PERIACTIN [Concomitant]
     Indication: MIGRAINE
     Dosage: 4 MG, TID
     Route: 048
     Dates: start: 20050101
  6. ALBUTEROL [Concomitant]
     Indication: ASTHMA
     Dosage: 2 PUFFS Q4H PRN
     Route: 048
     Dates: start: 19920101
  7. PRILOSEC [Concomitant]
     Indication: GASTRITIS
     Dosage: 40 MG, DAILY
     Route: 048
     Dates: start: 20060301

REACTIONS (6)
  - HAEMOGLOBIN DECREASED [None]
  - HAEMORRHAGIC STROKE [None]
  - RESUSCITATION [None]
  - SERUM FERRITIN INCREASED [None]
  - SICKLE CELL ANAEMIA WITH CRISIS [None]
  - TREATMENT NONCOMPLIANCE [None]
